FAERS Safety Report 6864454-3 (Version None)
Quarter: 2010Q3

REPORT INFORMATION
  Report Type: 
  Country: None (occurrence: None)
  Receive Date: 20100721
  Receipt Date: 20080329
  Transmission Date: 20110219
  Serious: No
  Sender: FDA-Public Use
  Company Number: US-PFIZER INC-2008028995

PATIENT
  Sex: Female
  Weight: 100 kg

DRUGS (9)
  1. CHANTIX [Suspect]
     Indication: SMOKING CESSATION THERAPY
     Dates: start: 20080324
  2. LEXAPRO [Concomitant]
  3. WELLBUTRIN [Concomitant]
  4. SYNTHROID [Concomitant]
  5. ADVAIR DISKUS 100/50 [Concomitant]
     Route: 055
  6. ACIPHEX [Concomitant]
  7. PREMARIN [Concomitant]
  8. PROVERA [Concomitant]
  9. EFFEXOR [Concomitant]

REACTIONS (1)
  - HYPERHIDROSIS [None]
